FAERS Safety Report 6246875-5 (Version None)
Quarter: 2009Q2

REPORT INFORMATION
  Report Type: 
  Country: None (occurrence: None)
  Receive Date: 20090626
  Receipt Date: 20090617
  Transmission Date: 20091009
  Serious: Yes (Hospitalization)
  Sender: FDA-Public Use
  Company Number: US-AMGEN-US352135

PATIENT
  Sex: Male

DRUGS (8)
  1. NEULASTA [Suspect]
     Indication: CHEMOTHERAPY
     Dates: start: 20090604
  2. LISINOPRIL [Concomitant]
  3. METFORMIN [Concomitant]
  4. HUMULIN R [Concomitant]
  5. SYNTHROID [Concomitant]
  6. PRANDIN [Concomitant]
  7. LEXAPRO [Concomitant]
  8. PROTONIX [Concomitant]

REACTIONS (1)
  - THERAPEUTIC RESPONSE DECREASED [None]
